FAERS Safety Report 10146284 (Version 1)
Quarter: 2014Q2

REPORT INFORMATION
  Report Type: Spontaneous
  Country: US (occurrence: US)
  Receive Date: 20140501
  Receipt Date: 20140501
  Transmission Date: 20141212
  Serious: No
  Sender: FDA-Public Use
  Company Number: US-PFIZER INC-2014117234

PATIENT
  Sex: Female

DRUGS (1)
  1. ADVIL GELCAPS [Suspect]
     Dosage: UNK
     Route: 048

REACTIONS (5)
  - Poor quality drug administered [Unknown]
  - Oral discomfort [Unknown]
  - Glossodynia [Unknown]
  - Hypoaesthesia [Unknown]
  - Product physical issue [Unknown]
